FAERS Safety Report 11658695 (Version 1)
Quarter: 2015Q4

REPORT INFORMATION
  Report Type: Report from Study
  Country: VE (occurrence: VE)
  Receive Date: 20151026
  Receipt Date: 20151026
  Transmission Date: 20160304
  Serious: Yes (Other)
  Sender: FDA-Public Use
  Company Number: PHHY2015VE135332

PATIENT
  Sex: Female

DRUGS (3)
  1. ATORVASTATIN [Concomitant]
     Active Substance: ATORVASTATIN
     Indication: PRODUCT USED FOR UNKNOWN INDICATION
     Route: 065
  2. TIROP [Concomitant]
     Indication: THYROID DISORDER
     Dosage: 25 MG, QD
     Route: 065
  3. SANDOSTATIN LAR DEPOT [Suspect]
     Active Substance: OCTREOTIDE ACETATE
     Indication: PITUITARY TUMOUR
     Dosage: 20 MG, QMO
     Route: 065
     Dates: start: 20050609

REACTIONS (8)
  - Arteriosclerosis [Recovered/Resolved]
  - Malaise [Recovered/Resolved]
  - Influenza [Recovered/Resolved]
  - Neoplasm [Recovered/Resolved]
  - Productive cough [Recovered/Resolved]
  - Neoplasm progression [Recovered/Resolved]
  - Thyroid neoplasm [Recovered/Resolved]
  - Hyperglycaemia [Recovered/Resolved]
